FAERS Safety Report 6996663-7 (Version None)
Quarter: 2010Q3

REPORT INFORMATION
  Report Type: 
  Country: None (occurrence: None)
  Receive Date: 20100918
  Receipt Date: 20090622
  Transmission Date: 20110219
  Serious: No
  Sender: FDA-Public Use
  Company Number: US-WYE-H09893009

PATIENT
  Sex: Female
  Weight: 90.8 kg

DRUGS (5)
  1. EFFEXOR XR [Suspect]
     Indication: BIPOLAR DISORDER
     Dosage: UNKNOWN
     Route: 048
     Dates: start: 19970101, end: 20040101
  2. EFFEXOR XR [Suspect]
     Route: 048
     Dates: start: 20040101
  3. SINGULAIR [Concomitant]
  4. FEXOFENADINE HCL [Concomitant]
  5. WELLBUTRIN [Concomitant]

REACTIONS (8)
  - DRUG EFFECT DECREASED [None]
  - DRUG WITHDRAWAL SYNDROME [None]
  - FATIGUE [None]
  - FEELING HOT [None]
  - HYPERHIDROSIS [None]
  - HYPERSOMNIA [None]
  - MALAISE [None]
  - WEIGHT INCREASED [None]
